FAERS Safety Report 12980654 (Version 5)
Quarter: 2017Q1

REPORT INFORMATION
  Report Type: Spontaneous
  Country: US (occurrence: US)
  Receive Date: 20161128
  Receipt Date: 20170216
  Transmission Date: 20170428
  Serious: Yes (Hospitalization)
  Sender: FDA-Public Use
  Company Number: US-ACTELION-A-US2016-145927

PATIENT
  Age: 55 Year
  Sex: Female

DRUGS (4)
  1. UPTRAVI [Suspect]
     Active Substance: SELEXIPAG
     Dosage: 1400 MCG, BID
     Route: 048
     Dates: start: 20161114, end: 201701
  2. UPTRAVI [Suspect]
     Active Substance: SELEXIPAG
     Dosage: 1600 MCG, BID
     Route: 048
  3. UPTRAVI [Suspect]
     Active Substance: SELEXIPAG
     Indication: PULMONARY ARTERIAL HYPERTENSION
     Dosage: 800 MCG, BID
     Route: 048
     Dates: start: 20161020, end: 20161113
  4. OXYGEN. [Concomitant]
     Active Substance: OXYGEN
     Dosage: 2 LITERS
     Route: 045

REACTIONS (7)
  - Gastrointestinal disorder [Recovered/Resolved]
  - Cough [Unknown]
  - Abdominal discomfort [Unknown]
  - Dizziness [Unknown]
  - Therapy non-responder [Unknown]
  - Oxygen supplementation [Unknown]
  - Condition aggravated [Unknown]

NARRATIVE: CASE EVENT DATE: 20161207
